FAERS Safety Report 15660737 (Version 1)
Quarter: 2018Q4

REPORT INFORMATION
  Report Type: Spontaneous
  Country: SG (occurrence: SG)
  Receive Date: 20181127
  Receipt Date: 20181127
  Transmission Date: 20190205
  Serious: Yes (Other)
  Sender: FDA-Public Use
  Company Number: SG-TELIGENT, INC-IGIL20180661

PATIENT
  Age: 54 Year
  Sex: Male

DRUGS (2)
  1. CEFTAZIDIME. [Suspect]
     Active Substance: CEFTAZIDIME
     Indication: PRODUCT USED FOR UNKNOWN INDICATION
     Dosage: UNKNOWN
     Route: 042
     Dates: start: 20180909, end: 20181003
  2. VANCOMYCIN [Suspect]
     Active Substance: VANCOMYCIN
     Indication: PRODUCT USED FOR UNKNOWN INDICATION
     Dosage: UNKNOWN
     Route: 042
     Dates: start: 20180904, end: 20181003

REACTIONS (2)
  - Transaminases increased [Not Recovered/Not Resolved]
  - Drug reaction with eosinophilia and systemic symptoms [Not Recovered/Not Resolved]

NARRATIVE: CASE EVENT DATE: 20181003
